FAERS Safety Report 4711424-7 (Version None)
Quarter: 2005Q3

REPORT INFORMATION
  Report Type: 
  Country: None (occurrence: None)
  Receive Date: 20050711
  Receipt Date: 20050627
  Transmission Date: 20060218
  Serious: Yes (Hospitalization, Other)
  Sender: FDA-Public Use
  Company Number: 2005087328

PATIENT
  Sex: Male
  Weight: 98.8842 kg

DRUGS (5)
  1. XANAX [Suspect]
     Indication: ANXIETY
     Dosage: 1.5 MG (1 MG, 3 IN 1 D), ORAL
     Route: 048
     Dates: start: 19870101
  2. ZITHROMAX [Concomitant]
     Indication: PNEUMONIA
     Dosage: 500 MG (1 IN 1 D), INTRAVNEOUS
     Route: 042
     Dates: start: 20050605, end: 20050606
  3. ZITHROMAX [Suspect]
     Indication: PNEUMONIA
     Dosage: 500 MG (250 MG, 1 IN 1 D), ORAL
     Route: 048
     Dates: start: 20050608
  4. CIPROFLOXACIN [Suspect]
     Indication: ILL-DEFINED DISORDER
  5. PROPRANOLOL [Concomitant]

REACTIONS (13)
  - ASTHENIA [None]
  - BLOOD PRESSURE ABNORMAL [None]
  - CONVULSION [None]
  - DRUG HYPERSENSITIVITY [None]
  - DRUG INTERACTION [None]
  - DRY MOUTH [None]
  - EXTRASYSTOLES [None]
  - FEELING ABNORMAL [None]
  - MACULAR DEGENERATION [None]
  - PNEUMONIA [None]
  - TREATMENT NONCOMPLIANCE [None]
  - TREMOR [None]
  - UNEVALUABLE EVENT [None]
